FAERS Safety Report 20326886 (Version 3)
Quarter: 2022Q2

REPORT INFORMATION
  Report Type: Report from Study
  Country: JP (occurrence: JP)
  Receive Date: 20220112
  Receipt Date: 20220620
  Transmission Date: 20220721
  Serious: Yes (Death, Life-Threatening, Other)
  Sender: FDA-Public Use
  Company Number: JP-ASTELLAS-2021JP024598

PATIENT
  Age: 72 Year
  Sex: Male

DRUGS (5)
  1. ENFORTUMAB VEDOTIN [Suspect]
     Active Substance: ENFORTUMAB VEDOTIN
     Indication: Bladder cancer
     Route: 041
     Dates: start: 20211207, end: 20211221
  2. ENFORTUMAB VEDOTIN [Suspect]
     Active Substance: ENFORTUMAB VEDOTIN
     Indication: Transitional cell carcinoma
  3. PEMBROLIZUMAB [Concomitant]
     Active Substance: PEMBROLIZUMAB
     Indication: Transitional cell carcinoma
     Dosage: UNK UNK, UNKNOWN FREQ.
     Route: 065
     Dates: start: 20211116, end: 20211116
  4. Lopemin [Concomitant]
     Indication: Diarrhoea
     Dosage: UNK UNK, TWICE DAILY
     Route: 065
     Dates: start: 20211216
  5. CEFEPIME HYDROCHLORIDE [Concomitant]
     Active Substance: CEFEPIME HYDROCHLORIDE
     Indication: Product used for unknown indication
     Route: 065
     Dates: start: 20211224, end: 20211227

REACTIONS (7)
  - Disseminated intravascular coagulation [Not Recovered/Not Resolved]
  - Myelosuppression [Unknown]
  - Interstitial lung disease [Fatal]
  - Toxic epidermal necrolysis [Fatal]
  - Neutropenia [Not Recovered/Not Resolved]
  - Diarrhoea [Recovering/Resolving]
  - Diarrhoea [Not Recovered/Not Resolved]

NARRATIVE: CASE EVENT DATE: 20211215
